FAERS Safety Report 15348551 (Version 1)
Quarter: 2018Q3

REPORT INFORMATION
  Report Type: Spontaneous
  Country: US (occurrence: US)
  Receive Date: 20180904
  Receipt Date: 20180904
  Transmission Date: 20181010
  Serious: No
  Sender: FDA-Public Use
  Company Number: US-OREXO US, INC.-ORE201802-000008

PATIENT
  Age: 43 Year
  Sex: Male

DRUGS (1)
  1. ZUBSOLV [Suspect]
     Active Substance: BUPRENORPHINE HYDROCHLORIDE\NALOXONE HYDROCHLORIDE
     Indication: DRUG DEPENDENCE
     Dosage: 5.7 MG/ 1.4 MG
     Route: 060

REACTIONS (5)
  - Drug withdrawal syndrome [Unknown]
  - Restlessness [Unknown]
  - Myalgia [Unknown]
  - Nausea [Unknown]
  - Discomfort [Unknown]
